FAERS Safety Report 5792372-0 (Version None)
Quarter: 2008Q2

REPORT INFORMATION
  Report Type: 
  Country: None (occurrence: None)
  Receive Date: 20080626
  Receipt Date: 20080318
  Transmission Date: 20081010
  Serious: No
  Sender: FDA-Public Use
  Company Number: US-ASTRAZENECA-2008UW05580

PATIENT
  Age: 4 Year
  Sex: Male
  Weight: 22.7 kg

DRUGS (2)
  1. PULMICORT-100 [Suspect]
     Indication: ASTHMA
     Dosage: 180 UG - 1 PUFF QD
     Route: 055
     Dates: start: 20070301
  2. ALBUTEROL [Concomitant]

REACTIONS (1)
  - CROUP INFECTIOUS [None]
